FAERS Safety Report 23407705 (Version 1)
Quarter: 2024Q1

REPORT INFORMATION
  Report Type: Report from Study
  Country: US (occurrence: US)
  Receive Date: 20240117
  Receipt Date: 20240117
  Transmission Date: 20240410
  Serious: No
  Sender: FDA-Public Use
  Company Number: US-ALXN-A202307250

PATIENT
  Sex: Male

DRUGS (1)
  1. SOLIRIS [Suspect]
     Active Substance: ECULIZUMAB
     Indication: Myasthenia gravis
     Dosage: UNK
     Route: 065

REACTIONS (10)
  - Feeling abnormal [Unknown]
  - Pain [Unknown]
  - Therapeutic response shortened [Unknown]
  - Symptom recurrence [Unknown]
  - Eyelid ptosis [Unknown]
  - Radiation injury [Unknown]
  - Cardiac disorder [Unknown]
  - Asthenia [Unknown]
  - Oropharyngeal pain [Recovering/Resolving]
  - Insurance issue [Unknown]

NARRATIVE: CASE EVENT DATE: 20230530
